FAERS Safety Report 8827857 (Version 1)
Quarter: 2012Q4

REPORT INFORMATION
  Report Type: 
  Country: FR (occurrence: FR)
  Receive Date: 20121005
  Receipt Date: 20121005
  Transmission Date: 20130627
  Serious: Yes (Other)
  Sender: FDA-Public Use
  Company Number: FR-ABBOTT-12P-056-0988473-00

PATIENT
  Age: 59 Year
  Sex: Female

DRUGS (2)
  1. HUMIRA [Suspect]
     Indication: ANKYLOSING SPONDYLITIS
     Route: 058
     Dates: start: 20111024
  2. PIROXICAM BETA-CYCLODEXTRIN [Concomitant]
     Indication: ANKYLOSING SPONDYLITIS
     Dosage: if pain
     Dates: start: 2009

REACTIONS (3)
  - Fluid overload [Unknown]
  - Sarcoidosis [Not Recovered/Not Resolved]
  - Drug effect decreased [Unknown]
